FAERS Safety Report 7038496-1 (Version None)
Quarter: 2010Q4

REPORT INFORMATION
  Report Type: 
  Country: None (occurrence: None)
  Receive Date: 20101011
  Receipt Date: 20100430
  Transmission Date: 20110411
  Serious: Yes (Other)
  Sender: FDA-Public Use
  Company Number: US-PFIZER INC-2010055479

PATIENT
  Sex: Female

DRUGS (2)
  1. NEURONTIN [Suspect]
     Dosage: 300 MG, DAILY
     Route: 048
     Dates: start: 20100218, end: 20100430
  2. ESTRACE [Concomitant]
     Dosage: UNK

REACTIONS (4)
  - ALOPECIA [None]
  - AMENORRHOEA [None]
  - INSOMNIA [None]
  - WRONG TECHNIQUE IN DRUG USAGE PROCESS [None]
